FAERS Safety Report 17867896 (Version 3)
Quarter: 2020Q2

REPORT INFORMATION
  Report Type: Report from Study
  Country: DE (occurrence: DE)
  Receive Date: 20200605
  Receipt Date: 20200610
  Transmission Date: 20200714
  Serious: Yes (Death)
  Sender: FDA-Public Use
  Company Number: DE-CELGENEUS-DEU-20200601421

PATIENT
  Age: 8 Decade
  Sex: Male
  Weight: 80 kg

DRUGS (14)
  1. APIXABAN [Concomitant]
     Active Substance: APIXABAN
     Indication: PROPHYLAXIS
     Dosage: 5 MILLIGRAM
     Route: 048
     Dates: start: 20200509, end: 20200604
  2. APIXABAN [Concomitant]
     Active Substance: APIXABAN
     Indication: ATRIAL FIBRILLATION
  3. DEXAMETHASONE. [Suspect]
     Active Substance: DEXAMETHASONE
     Route: 048
     Dates: start: 20200602, end: 20200603
  4. VALSARTAN. [Concomitant]
     Active Substance: VALSARTAN
     Indication: HYPERTENSION
     Dosage: 16 MILLIGRAM
     Route: 048
     Dates: start: 20200424, end: 20200604
  5. LENALIDOMIDE [Suspect]
     Active Substance: LENALIDOMIDE
     Indication: PLASMA CELL MYELOMA
     Dosage: 25 MILLIGRAM
     Route: 048
     Dates: start: 20200116, end: 20200205
  6. CARFILZOMIB [Suspect]
     Active Substance: CARFILZOMIB
     Dosage: 69.12 MILLIGRAM
     Route: 041
     Dates: start: 20200325, end: 20200603
  7. ACICLOVIR [Concomitant]
     Active Substance: ACYCLOVIR
     Indication: ANTIVIRAL PROPHYLAXIS
     Dosage: 400 MILLIGRAM
     Route: 048
     Dates: start: 20200116
  8. CARFILZOMIB [Suspect]
     Active Substance: CARFILZOMIB
     Dosage: 40 MILLIGRAM
     Route: 041
     Dates: start: 20200213, end: 20200214
  9. DAPSON [Concomitant]
     Active Substance: DAPSONE
     Indication: ANTIBIOTIC PROPHYLAXIS
     Dosage: 100 MILLIGRAM
     Route: 048
     Dates: start: 20200509, end: 20200604
  10. CARFILZOMIB [Suspect]
     Active Substance: CARFILZOMIB
     Dosage: 72 MILLIGRAM
     Route: 041
     Dates: start: 20200123, end: 20200131
  11. CARFILZOMIB [Suspect]
     Active Substance: CARFILZOMIB
     Dosage: 67.68 MILLIGRAM
     Route: 041
     Dates: start: 20200305, end: 20200313
  12. LENALIDOMIDE [Suspect]
     Active Substance: LENALIDOMIDE
     Dosage: 15 MILLIGRAM
     Route: 048
     Dates: start: 20200214, end: 20200215
  13. DEXAMETHASONE. [Suspect]
     Active Substance: DEXAMETHASONE
     Indication: PLASMA CELL MYELOMA
     Dosage: 4 MILLIGRAM
     Route: 048
     Dates: start: 20200116
  14. CARFILZOMIB [Suspect]
     Active Substance: CARFILZOMIB
     Indication: PLASMA CELL MYELOMA
     Dosage: 40 MILLIGRAM
     Route: 041
     Dates: start: 20200116, end: 20200117

REACTIONS (1)
  - Cardiac arrest [Fatal]

NARRATIVE: CASE EVENT DATE: 20200604
